FAERS Safety Report 7206857-3 (Version None)
Quarter: 2010Q4

REPORT INFORMATION
  Report Type: 
  Country: None (occurrence: None)
  Receive Date: 20101230
  Receipt Date: 20101230
  Transmission Date: 20110411
  Serious: Yes (Life-Threatening, Hospitalization, Other)
  Sender: FDA-Public Use
  Company Number: None

PATIENT
  Age: 21 Year
  Sex: Female
  Weight: 53.5244 kg

DRUGS (2)
  1. ORTHO TRI-CYCLEN LO [Suspect]
     Indication: DEHYDROEPIANDROSTERONE INCREASED
     Dosage: .180 MG 1X/DAY PO
     Route: 048
     Dates: start: 20100801, end: 20101215
  2. SUMATRIPTAN [Concomitant]

REACTIONS (6)
  - ABDOMINAL DISCOMFORT [None]
  - DISTURBANCE IN ATTENTION [None]
  - INTRACRANIAL VENOUS SINUS THROMBOSIS [None]
  - MIGRAINE [None]
  - SOMNOLENCE [None]
  - STRESS [None]
